FAERS Safety Report 20700347 (Version 2)
Quarter: 2022Q2

REPORT INFORMATION
  Report Type: Spontaneous
  Country: CZ (occurrence: CZ)
  Receive Date: 20220412
  Receipt Date: 20220425
  Transmission Date: 20220721
  Serious: Yes (Other)
  Sender: FDA-Public Use
  Company Number: CZ-ROCHE-3039974

PATIENT
  Age: 11 Year
  Sex: Male

DRUGS (45)
  1. PANTOPRAZOLE [Suspect]
     Active Substance: PANTOPRAZOLE
     Indication: Autoimmune haemolytic anaemia
     Dosage: UNK, 0.2-2.5 MG/KG/DAY SINCE 6 YEARS
     Route: 065
  2. PANTOPRAZOLE [Suspect]
     Active Substance: PANTOPRAZOLE
     Indication: Lymphoproliferative disorder
     Dosage: UNK, 0.3-2.5 MG/KG/DAY
     Route: 065
  3. PANTOPRAZOLE [Suspect]
     Active Substance: PANTOPRAZOLE
     Indication: Autoinflammatory disease
  4. PANTOPRAZOLE [Suspect]
     Active Substance: PANTOPRAZOLE
     Indication: Prophylaxis against transplant rejection
  5. RITUXIMAB [Suspect]
     Active Substance: RITUXIMAB
     Indication: Autoimmune haemolytic anaemia
     Dosage: 375 MILLIGRAM/SQ. METER, 5 TIMES
     Route: 042
  6. RITUXIMAB [Suspect]
     Active Substance: RITUXIMAB
     Indication: Lymphoproliferative disorder
     Dosage: 375 MILLIGRAM/SQ. METER, 4 TIMES
     Route: 042
  7. RITUXIMAB [Suspect]
     Active Substance: RITUXIMAB
     Indication: Autoinflammatory disease
  8. RITUXIMAB [Suspect]
     Active Substance: RITUXIMAB
     Indication: Prophylaxis against transplant rejection
  9. HYDROXYCHLOROQUINE [Suspect]
     Active Substance: HYDROXYCHLOROQUINE
     Indication: Lymphoproliferative disorder
     Dosage: UNK, FROM 12 YEARS
     Route: 065
  10. HYDROXYCHLOROQUINE [Suspect]
     Active Substance: HYDROXYCHLOROQUINE
     Indication: Autoimmune haemolytic anaemia
  11. HYDROXYCHLOROQUINE [Suspect]
     Active Substance: HYDROXYCHLOROQUINE
     Indication: Autoinflammatory disease
  12. METHYLPREDNISOLONE [Suspect]
     Active Substance: METHYLPREDNISOLONE
     Indication: Autoinflammatory disease
     Dosage: UNK
     Route: 065
  13. METHYLPREDNISOLONE [Suspect]
     Active Substance: METHYLPREDNISOLONE
     Indication: Lymphoproliferative disorder
  14. METHYLPREDNISOLONE [Suspect]
     Active Substance: METHYLPREDNISOLONE
     Indication: Autoimmune haemolytic anaemia
  15. METHYLPREDNISOLONE [Suspect]
     Active Substance: METHYLPREDNISOLONE
     Indication: Prophylaxis against transplant rejection
  16. AZATHIOPRINE [Suspect]
     Active Substance: AZATHIOPRINE
     Indication: Autoimmune haemolytic anaemia
     Dosage: UNK, 3-5 YEARS
     Route: 065
  17. AZATHIOPRINE [Suspect]
     Active Substance: AZATHIOPRINE
     Indication: Autoinflammatory disease
  18. AZATHIOPRINE [Suspect]
     Active Substance: AZATHIOPRINE
     Indication: Lymphoproliferative disorder
  19. AZATHIOPRINE [Suspect]
     Active Substance: AZATHIOPRINE
     Indication: Prophylaxis against transplant rejection
  20. DOMPERIDONE [Suspect]
     Active Substance: DOMPERIDONE
     Indication: Autoinflammatory disease
     Dosage: UNK, 0.2-2.5 MG/KG/DAY SINCE 6 YEARS
     Route: 065
  21. DOMPERIDONE [Suspect]
     Active Substance: DOMPERIDONE
     Indication: Autoimmune haemolytic anaemia
     Dosage: UNK, 0.3-2.5 MG/KG/DAY
     Route: 065
  22. DOMPERIDONE [Suspect]
     Active Substance: DOMPERIDONE
     Indication: Lymphoproliferative disorder
  23. DOMPERIDONE [Suspect]
     Active Substance: DOMPERIDONE
     Indication: Prophylaxis against transplant rejection
  24. SIROLIMUS [Suspect]
     Active Substance: SIROLIMUS
     Indication: Autoinflammatory disease
     Dosage: UNK, 10 MCG/L FROM 8 YEARS
     Route: 065
  25. SIROLIMUS [Suspect]
     Active Substance: SIROLIMUS
     Indication: Autoimmune haemolytic anaemia
     Dosage: UNK
     Route: 065
  26. SIROLIMUS [Suspect]
     Active Substance: SIROLIMUS
     Indication: Lymphoproliferative disorder
  27. SIROLIMUS [Suspect]
     Active Substance: SIROLIMUS
     Indication: Prophylaxis against transplant rejection
  28. CYCLOSPORINE [Suspect]
     Active Substance: CYCLOSPORINE
     Indication: Prophylaxis against transplant rejection
     Dosage: UNK
     Route: 065
  29. CYCLOSPORINE [Suspect]
     Active Substance: CYCLOSPORINE
     Indication: Autoimmune haemolytic anaemia
  30. CYCLOSPORINE [Suspect]
     Active Substance: CYCLOSPORINE
     Indication: Lymphoproliferative disorder
  31. CYCLOSPORINE [Suspect]
     Active Substance: CYCLOSPORINE
     Indication: Autoinflammatory disease
  32. IBUPROFEN [Suspect]
     Active Substance: IBUPROFEN
     Indication: Prophylaxis against transplant rejection
     Dosage: UNK, 1-2 X DAILY (FROM 10 YEARS)
     Route: 065
  33. IBUPROFEN [Suspect]
     Active Substance: IBUPROFEN
     Indication: Lymphoproliferative disorder
  34. IBUPROFEN [Suspect]
     Active Substance: IBUPROFEN
     Indication: Autoinflammatory disease
  35. IBUPROFEN [Suspect]
     Active Substance: IBUPROFEN
     Indication: Autoimmune haemolytic anaemia
  36. METHOTREXATE [Suspect]
     Active Substance: METHOTREXATE
     Indication: Autoinflammatory disease
     Dosage: 15 MILLIGRAM, QW, FROM 10 YEARS
     Route: 058
  37. METHOTREXATE [Suspect]
     Active Substance: METHOTREXATE
     Indication: Prophylaxis against transplant rejection
  38. METHOTREXATE [Suspect]
     Active Substance: METHOTREXATE
     Indication: Lymphoproliferative disorder
  39. METHOTREXATE [Suspect]
     Active Substance: METHOTREXATE
     Indication: Autoimmune haemolytic anaemia
  40. ANAKINRA [Suspect]
     Active Substance: ANAKINRA
     Indication: Prophylaxis against transplant rejection
     Dosage: UNK, FROM 9 YEARS
     Route: 065
  41. ANAKINRA [Suspect]
     Active Substance: ANAKINRA
     Indication: Autoinflammatory disease
  42. ANAKINRA [Suspect]
     Active Substance: ANAKINRA
     Indication: Lymphoproliferative disorder
  43. ANAKINRA [Suspect]
     Active Substance: ANAKINRA
     Indication: Autoimmune haemolytic anaemia
  44. ZOLEDRONIC ACID [Concomitant]
     Active Substance: ZOLEDRONIC ACID
     Dosage: UNK
  45. CALCIUM [Concomitant]
     Active Substance: CALCIUM
     Dosage: UNK

REACTIONS (9)
  - Enterocolitis bacterial [Unknown]
  - Gastroenteritis salmonella [Unknown]
  - Cytomegalovirus infection reactivation [Unknown]
  - Upper respiratory tract infection [Unknown]
  - Varicella [Unknown]
  - Herpes zoster [Unknown]
  - Human herpesvirus 6 infection [Unknown]
  - Epstein-Barr virus infection [Unknown]
  - Adenovirus infection [Unknown]
